FAERS Safety Report 14606916 (Version 4)
Quarter: 2022Q4

REPORT INFORMATION
  Report Type: Spontaneous
  Country: US (occurrence: None)
  Receive Date: 20180307
  Receipt Date: 20221122
  Transmission Date: 20230113
  Serious: Yes (Other)
  Sender: FDA-Public Use
  Company Number: 2018SE27918

PATIENT
  Age: 22095 Day
  Sex: Female
  Weight: 78 kg

DRUGS (49)
  1. NEXIUM [Suspect]
     Active Substance: ESOMEPRAZOLE MAGNESIUM
     Indication: Gastrooesophageal reflux disease
     Dosage: 40.0MG UNKNOWN
     Route: 048
     Dates: start: 2007, end: 2010
  2. NEXIUM [Suspect]
     Active Substance: ESOMEPRAZOLE MAGNESIUM
     Indication: Gastrooesophageal reflux disease
     Dosage: 40.0MG UNKNOWN
     Route: 048
     Dates: start: 2011
  3. NEXIUM [Suspect]
     Active Substance: ESOMEPRAZOLE MAGNESIUM
     Indication: Gastrooesophageal reflux disease
     Dosage: UNKNOWN
     Route: 048
     Dates: end: 2016
  4. PRILOSEC [Suspect]
     Active Substance: OMEPRAZOLE MAGNESIUM
     Indication: Gastrooesophageal reflux disease
     Route: 048
     Dates: start: 2007
  5. PRILOSEC [Suspect]
     Active Substance: OMEPRAZOLE MAGNESIUM
     Indication: Gastrooesophageal reflux disease
     Dosage: GENERIC 20MG DAILY
     Route: 065
     Dates: start: 2007
  6. PRILOSEC [Suspect]
     Active Substance: OMEPRAZOLE MAGNESIUM
     Indication: Gastrooesophageal reflux disease
     Route: 048
     Dates: start: 2010, end: 2016
  7. PRILOSEC [Suspect]
     Active Substance: OMEPRAZOLE MAGNESIUM
     Indication: Gastrooesophageal reflux disease
     Dosage: GENERIC 20MG DAILY
     Route: 065
     Dates: start: 2010
  8. PROTONIX [Suspect]
     Active Substance: PANTOPRAZOLE SODIUM
     Indication: Gastrooesophageal reflux disease
     Route: 065
     Dates: start: 2007
  9. PROTONIX [Suspect]
     Active Substance: PANTOPRAZOLE SODIUM
     Indication: Gastrooesophageal reflux disease
     Dosage: GENERIC 40 MG DAILY
     Route: 065
     Dates: start: 2011, end: 2016
  10. PROTONIX [Suspect]
     Active Substance: PANTOPRAZOLE SODIUM
     Indication: Gastrooesophageal reflux disease
     Dosage: GENERIC
     Route: 065
     Dates: start: 2011
  11. PROTONIX [Suspect]
     Active Substance: PANTOPRAZOLE SODIUM
     Indication: Gastrooesophageal reflux disease
     Route: 048
     Dates: start: 20140421
  12. ACCUPRIL [Concomitant]
     Active Substance: QUINAPRIL HYDROCHLORIDE
     Indication: Blood pressure abnormal
     Route: 048
     Dates: start: 2006
  13. COREG [Concomitant]
     Active Substance: CARVEDILOL
     Indication: Cardiac disorder
     Route: 048
     Dates: start: 2006
  14. ROSUVASTATIN [Concomitant]
     Active Substance: ROSUVASTATIN
     Indication: Blood cholesterol abnormal
     Dates: start: 2007
  15. LASIX [Concomitant]
     Active Substance: FUROSEMIDE
     Indication: Fluid retention
     Route: 048
     Dates: start: 2006
  16. PEPCID [Concomitant]
     Active Substance: FAMOTIDINE
     Indication: Gastrooesophageal reflux disease
     Route: 048
     Dates: start: 201708
  17. PEPCID [Concomitant]
     Active Substance: FAMOTIDINE
     Indication: Gastrooesophageal reflux disease
     Route: 048
     Dates: start: 20180601
  18. ASPIRIN [Concomitant]
     Active Substance: ASPIRIN
     Indication: Cardiac disorder
     Route: 048
     Dates: start: 2006
  19. CENTRUM VITAMIN [Concomitant]
     Indication: Phytotherapy
     Route: 048
     Dates: start: 2006
  20. VITAMIN D 3000 [Concomitant]
     Indication: Nutritional supplementation
     Dates: start: 2006
  21. DOCUSATE SODIUM [Concomitant]
     Active Substance: DOCUSATE SODIUM
     Route: 048
  22. ALDACTONE [Concomitant]
     Active Substance: SPIRONOLACTONE
     Dosage: 25 MG EVERY MONDAY, WEDNESDAY AND FRIDAY
     Route: 048
  23. NAPROXEN [Concomitant]
     Active Substance: NAPROXEN
  24. ALENDRONATE [Concomitant]
     Active Substance: ALENDRONATE SODIUM
  25. FUROSEMIDE [Concomitant]
     Active Substance: FUROSEMIDE
  26. CARVEDILOL [Concomitant]
     Active Substance: CARVEDILOL
     Dates: start: 20180601
  27. ZANTAC [Concomitant]
     Active Substance: RANITIDINE HYDROCHLORIDE
  28. PREVACID [Concomitant]
     Active Substance: LANSOPRAZOLE
  29. DOCUSATE [Concomitant]
     Active Substance: DOCUSATE
  30. FERROUS SULFATE [Concomitant]
     Active Substance: FERROUS SULFATE
  31. SIMVASTATIN [Concomitant]
     Active Substance: SIMVASTATIN
  32. MAGNESIUM OXIDE [Concomitant]
     Active Substance: MAGNESIUM OXIDE
  33. CRESTOR [Concomitant]
     Active Substance: ROSUVASTATIN CALCIUM
  34. CALCIUM [Concomitant]
     Active Substance: CALCIUM
  35. AMLODIPINE [Concomitant]
     Active Substance: AMLODIPINE BESYLATE
     Dates: start: 20220202
  36. CALCITRIOL [Concomitant]
     Active Substance: CALCITRIOL
     Dates: start: 20220202
  37. ALBUTEROL SULFATE [Concomitant]
     Active Substance: ALBUTEROL SULFATE
     Dates: start: 20220202
  38. FLOVENT [Concomitant]
     Active Substance: FLUTICASONE PROPIONATE
     Dates: start: 20220202
  39. NITROGLYCERIN [Concomitant]
     Active Substance: NITROGLYCERIN
     Dates: start: 20220202
  40. ISOSORBIDE MONONITRATE [Concomitant]
     Active Substance: ISOSORBIDE MONONITRATE
     Dates: start: 20220202
  41. RISEDRONATE SODIUM [Concomitant]
     Active Substance: RISEDRONATE SODIUM
     Dates: start: 20220202
  42. CHOLECALCIFEROL [Concomitant]
     Active Substance: CHOLECALCIFEROL
  43. GLIMEPIRIDE [Concomitant]
     Active Substance: GLIMEPIRIDE
  44. FLOVENT HFA [Concomitant]
     Active Substance: FLUTICASONE PROPIONATE
  45. METFORMIN [Concomitant]
     Active Substance: METFORMIN HYDROCHLORIDE
  46. TRADJENTA [Concomitant]
     Active Substance: LINAGLIPTIN
  47. CIPRO/DEXA [Concomitant]
  48. POTA CHLORIDE [Concomitant]
  49. OFLOXACIN [Concomitant]
     Active Substance: OFLOXACIN

REACTIONS (3)
  - Chronic kidney disease [Not Recovered/Not Resolved]
  - Renal failure [Unknown]
  - Hyperparathyroidism secondary [Unknown]

NARRATIVE: CASE EVENT DATE: 20120611
